FAERS Safety Report 9202372 (Version 1)
Quarter: 2013Q2

REPORT INFORMATION
  Report Type: Spontaneous
  Country: IT (occurrence: IT)
  Receive Date: 20130401
  Receipt Date: 20130401
  Transmission Date: 20140414
  Serious: Yes (Hospitalization)
  Sender: FDA-Public Use
  Company Number: IT-BRISTOL-MYERS SQUIBB COMPANY-18714584

PATIENT
  Age: 44 Year
  Sex: Female

DRUGS (6)
  1. METFORMIN HCL TABS [Suspect]
     Route: 048
     Dates: start: 20130310, end: 20130310
  2. AMARYL [Suspect]
     Dosage: TABS
     Route: 048
     Dates: start: 20130310, end: 20130310
  3. HUMULIN [Suspect]
     Route: 030
     Dates: start: 20130310, end: 20130310
  4. DELORAZEPAM [Suspect]
     Dosage: 20DF- 20 TABS
     Route: 048
     Dates: start: 20130310, end: 20130310
  5. MINIAS [Suspect]
     Dosage: 1DF= 2.5MG/ML
     Route: 048
     Dates: start: 20130310, end: 20130310
  6. CITALOPRAM HYDROBROMIDE [Suspect]
     Route: 048
     Dates: start: 20130310, end: 20130310

REACTIONS (1)
  - Toxicity to various agents [Recovering/Resolving]
